FAERS Safety Report 21383279 (Version 1)
Quarter: 2022Q3

REPORT INFORMATION
  Report Type: Spontaneous
  Country: US (occurrence: US)
  Receive Date: 20220927
  Receipt Date: 20220927
  Transmission Date: 20221027
  Serious: No
  Sender: FDA-Public Use
  Company Number: US-TAKEDA-2022TUS066700

PATIENT
  Age: 20 Year
  Sex: Female

DRUGS (2)
  1. PENTASA [Suspect]
     Active Substance: MESALAMINE
     Indication: Coeliac disease
     Dosage: 4 DOSAGE FORM, BID
     Route: 065
  2. PENTASA [Suspect]
     Active Substance: MESALAMINE
     Indication: Crohn^s disease

REACTIONS (2)
  - Drug ineffective [Unknown]
  - Product residue present [Unknown]
